FAERS Safety Report 9432571 (Version 1)
Quarter: 2013Q3

REPORT INFORMATION
  Report Type: Spontaneous
  Country: US (occurrence: US)
  Receive Date: 20130731
  Receipt Date: 20130731
  Transmission Date: 20140515
  Serious: No
  Sender: FDA-Public Use
  Company Number: US-GLAXOSMITHKLINE-A1014767A

PATIENT
  Age: 93 Year
  Sex: Female

DRUGS (5)
  1. HYDROCHLOROTHIAZIDE\TRIAMTERENE [Suspect]
     Route: 048
     Dates: start: 2009, end: 2009
  2. TRIAMTERENE [Suspect]
     Route: 048
  3. COUMADIN [Concomitant]
  4. ATENOLOL [Concomitant]
  5. POTASSIUM [Concomitant]

REACTIONS (4)
  - Drug hypersensitivity [Recovered/Resolved]
  - Nausea [Recovered/Resolved]
  - Dizziness [Recovered/Resolved]
  - Tremor [Recovered/Resolved]
